FAERS Safety Report 23679748 (Version 1)
Quarter: 2024Q1

REPORT INFORMATION
  Report Type: Spontaneous
  Country: US (occurrence: US)
  Receive Date: 20240327
  Receipt Date: 20240327
  Transmission Date: 20240409
  Serious: No
  Sender: FDA-Public Use
  Company Number: US-TEVA-VS-3148329

PATIENT

DRUGS (1)
  1. SUCRALFATE [Suspect]
     Active Substance: SUCRALFATE
     Indication: Oesophagitis
     Route: 048

REACTIONS (2)
  - Product use complaint [Unknown]
  - Off label use [Unknown]

NARRATIVE: CASE EVENT DATE: 20240101
